FAERS Safety Report 8151510-5 (Version None)
Quarter: 2012Q1

REPORT INFORMATION
  Report Type: 
  Country: None (occurrence: None)
  Receive Date: 20120220
  Receipt Date: 20120208
  Transmission Date: 20120608
  Serious: Yes (Hospitalization)
  Sender: FDA-Public Use
  Company Number: US-ELI_LILLY_AND_COMPANY-US201103000659

PATIENT
  Sex: Female

DRUGS (22)
  1. FENTANYL [Concomitant]
     Indication: BACK PAIN
     Dosage: 50 UG, UNKNOWN
  2. DICLOFENAC [Concomitant]
     Indication: ARTHRITIS
     Dosage: 100 MG, OTHER
  3. PROTONIX [Concomitant]
     Indication: ABDOMINAL DISCOMFORT
     Dosage: 40 MG, QD
  4. OXYCODONE HCL [Concomitant]
     Indication: BREAKTHROUGH PAIN
     Dosage: 30 MG, OTHER
  5. CALCIUM [Concomitant]
     Dosage: UNK, QD
  6. MECLIZINE [Concomitant]
     Indication: DIZZINESS
  7. CYMBALTA [Suspect]
     Indication: DEPRESSION
     Dosage: 120 MG, QD
     Dates: start: 20110501
  8. LISINOPRIL [Concomitant]
     Dosage: 40 MG, QD
  9. SINGULAIR [Concomitant]
     Indication: ASTHMA
     Dosage: UNK, OTHER
  10. PHENERGAN [Concomitant]
     Indication: VOMITING
  11. FLEXERIL [Concomitant]
     Indication: MUSCLE SPASMS
  12. ZOFRAN [Concomitant]
     Dosage: UNK, OTHER
  13. OXYBUTYNIN [Concomitant]
     Dosage: 5 MG, QD
  14. NEURONTIN [Concomitant]
     Indication: NERVE INJURY
  15. VYTORIN [Concomitant]
     Indication: BLOOD CHOLESTEROL
     Dosage: 40 MG, QD
  16. XANAX [Concomitant]
     Indication: ANXIETY
     Dosage: 1 MG, PRN
  17. FORTEO [Suspect]
     Indication: OSTEOPOROSIS
     Dosage: 20 UG, QD
     Dates: end: 20110705
  18. FORTEO [Suspect]
     Dosage: 20 UG, QD
     Dates: start: 20110708
  19. COREG [Concomitant]
     Dosage: 125 MG, OTHER
  20. VITAMIN D [Concomitant]
  21. ACTOS [Concomitant]
     Indication: DIABETES MELLITUS
  22. MORPHINE [Concomitant]

REACTIONS (14)
  - MOVEMENT DISORDER [None]
  - HOSPITALISATION [None]
  - DIARRHOEA [None]
  - INJECTION SITE PAIN [None]
  - DIZZINESS [None]
  - VOMITING [None]
  - PAIN [None]
  - PYREXIA [None]
  - VERTIGO [None]
  - ASTHENIA [None]
  - MUSCLE SPASMS [None]
  - MALAISE [None]
  - INFLUENZA [None]
  - CONFUSIONAL STATE [None]
